FAERS Safety Report 5186837-2 (Version None)
Quarter: 2006Q4

REPORT INFORMATION
  Report Type: 
  Country: None (occurrence: None)
  Receive Date: 20061213
  Receipt Date: 20061205
  Transmission Date: 20070319
  Serious: Yes (Hospitalization)
  Sender: FDA-Public Use
  Company Number: S06-USA-05108-01

PATIENT
  Age: 70 Year
  Sex: Male

DRUGS (13)
  1. NAMENDA [Suspect]
     Indication: DEMENTIA ALZHEIMER'S TYPE
     Dosage: 5 MG BID PO
     Route: 048
     Dates: end: 20061115
  2. TYLENOL [Concomitant]
  3. ABILIFY [Concomitant]
  4. ASTELIN [Concomitant]
  5. BUMEX [Concomitant]
  6. DEPAKOTE [Concomitant]
  7. FLONASE [Concomitant]
  8. XALATAN [Concomitant]
  9. ESKALITH [Concomitant]
  10. CLARITIN [Concomitant]
  11. SEROQUEL [Concomitant]
  12. EXELON [Concomitant]
  13. VITAMIN E [Concomitant]

REACTIONS (2)
  - HYPERNATRAEMIA [None]
  - PANCREATITIS [None]
